FAERS Safety Report 21907764 (Version 1)
Quarter: 2023Q1

REPORT INFORMATION
  Report Type: Other
  Country: JP (occurrence: None)
  Receive Date: 20230125
  Receipt Date: 20230125
  Transmission Date: 20230417
  Serious: Yes (Other)
  Sender: FDA-Public Use
  Company Number: JP-Merck Healthcare KGaA-9378269

PATIENT
  Age: 27 Year
  Sex: Female

DRUGS (3)
  1. OVIDREL [Suspect]
     Active Substance: CHORIOGONADOTROPIN ALFA
     Indication: Infertility female
     Route: 058
  2. CLOMIPHENE [Suspect]
     Active Substance: CLOMIPHENE
     Indication: Infertility female
     Route: 048
  3. DYDROGESTERONE [Suspect]
     Active Substance: DYDROGESTERONE
     Indication: Infertility female
     Route: 048

REACTIONS (1)
  - Reversible cerebral vasoconstriction syndrome [Unknown]
